FAERS Safety Report 9177505 (Version 3)
Quarter: 2013Q2

REPORT INFORMATION
  Report Type: Spontaneous
  Country: US (occurrence: US)
  Receive Date: 20130321
  Receipt Date: 20130507
  Transmission Date: 20140414
  Serious: Yes (Other)
  Sender: FDA-Public Use
  Company Number: US-BAYER-2013-032384

PATIENT
  Age: 29 Year
  Sex: Female
  Weight: 54.42 kg

DRUGS (1)
  1. MIRENA [Suspect]
     Indication: CONTRACEPTION
     Dosage: 20 MCG/24HR, CONT
     Route: 015
     Dates: start: 20130227, end: 20130318

REACTIONS (5)
  - Genital haemorrhage [None]
  - Abdominal pain lower [None]
  - Uterine perforation [Recovered/Resolved]
  - Device expulsion [None]
  - Device difficult to use [None]
